FAERS Safety Report 16395506 (Version 2)
Quarter: 2019Q2

REPORT INFORMATION
  Report Type: Report from Study
  Country: US (occurrence: US)
  Receive Date: 20190605
  Receipt Date: 20190606
  Transmission Date: 20190711
  Serious: Yes (Hospitalization)
  Sender: FDA-Public Use
  Company Number: US-ASTRAZENECA-2016SE51585

PATIENT
  Age: 44 Year
  Sex: Male
  Weight: 90 kg

DRUGS (6)
  1. VALTREX [Concomitant]
     Active Substance: VALACYCLOVIR HYDROCHLORIDE
     Route: 048
  2. BACTRIM [Concomitant]
     Active Substance: SULFAMETHOXAZOLE\TRIMETHOPRIM
     Route: 048
  3. ACYCLOVIR. [Concomitant]
     Active Substance: ACYCLOVIR
     Route: 048
  4. AZITHROMYCIN ANHYDROUS. [Concomitant]
     Active Substance: AZITHROMYCIN ANHYDROUS
     Dosage: 1200 MG WEEKLY
     Route: 048
  5. CAT-8015 [Suspect]
     Active Substance: MOXETUMOMAB PASUDOTOX
     Indication: HAIRY CELL LEUKAEMIA
     Dosage: 40 UG/KG ON DAYS 1,3 AND 5 Q 28 DAYS OVER 30 MINUTES
     Route: 042
     Dates: start: 20140501
  6. NEUTRAPHOS [POTASSIUM PHOSPHATE, MONOBASIC\SODIUM PHOSPHATE, DIBASIC\SODIUM PHOSPHATE, MONOBASIC] [Suspect]
     Active Substance: POTASSIUM PHOSPHATE, MONOBASIC\SODIUM PHOSPHATE, DIBASIC\SODIUM PHOSPHATE, MONOBASIC
     Indication: HYPOPHOSPHATAEMIA
     Route: 065

REACTIONS (10)
  - Platelet count decreased [Recovered/Resolved]
  - Haematuria [Recovered/Resolved]
  - Diarrhoea [Recovered/Resolved]
  - Pyrexia [Recovered/Resolved]
  - Haptoglobin decreased [Recovered/Resolved]
  - Nausea [Recovered/Resolved]
  - Blood creatinine increased [Recovered/Resolved]
  - Vomiting [Recovered/Resolved]
  - Hypoxia [Recovered/Resolved]
  - Weight increased [Recovered/Resolved]

NARRATIVE: CASE EVENT DATE: 20140504
